FAERS Safety Report 24346612 (Version 1)
Quarter: 2024Q3

REPORT INFORMATION
  Report Type: Report from Study
  Country: US (occurrence: US)
  Receive Date: 20240921
  Receipt Date: 20240921
  Transmission Date: 20241016
  Serious: Yes (Other)
  Sender: None
  Company Number: US-ABBVIE-5931132

PATIENT
  Age: 60 Year
  Sex: Male

DRUGS (1)
  1. Skyrizi [Suspect]
     Route: 058
     Dates: start: 20230928

REACTIONS (1)
  - Hepatic failure [Not Recovered/Not Resolved]

NARRATIVE: CASE EVENT DATE: 20240501
